FAERS Safety Report 14276714 (Version 2)
Quarter: 2018Q1

REPORT INFORMATION
  Report Type: Report from Study
  Country: None (occurrence: US)
  Receive Date: 20171212
  Receipt Date: 20180101
  Transmission Date: 20180508
  Serious: Yes (Hospitalization)
  Sender: FDA-Public Use
  Company Number: US-ABBVIE-17K-163-2190160-00

PATIENT
  Age: 66 Year
  Sex: Male
  Weight: 93.07 kg

DRUGS (5)
  1. LIALDA [Concomitant]
     Active Substance: MESALAMINE
     Indication: COLITIS ULCERATIVE
  2. FINASTERIDE. [Concomitant]
     Active Substance: FINASTERIDE
     Indication: BLADDER CANCER
  3. SIMVASTATIN. [Concomitant]
     Active Substance: SIMVASTATIN
     Indication: BLOOD CHOLESTEROL INCREASED
  4. HUMIRA [Suspect]
     Active Substance: ADALIMUMAB
     Indication: COLITIS ULCERATIVE
     Route: 058
     Dates: start: 201610, end: 201712
  5. MERCAPTOPURINE. [Concomitant]
     Active Substance: MERCAPTOPURINE
     Indication: COLITIS ULCERATIVE

REACTIONS (8)
  - Lethargy [Recovering/Resolving]
  - Asthenia [Recovering/Resolving]
  - Vomiting [Recovered/Resolved]
  - Drug ineffective [Not Recovered/Not Resolved]
  - Occult blood positive [Unknown]
  - Respiratory tract congestion [Recovering/Resolving]
  - Abdominal pain [Recovering/Resolving]
  - Anaemia [Recovering/Resolving]

NARRATIVE: CASE EVENT DATE: 2017
